FAERS Safety Report 16478226 (Version 1)
Quarter: 2019Q2

REPORT INFORMATION
  Report Type: Spontaneous
  Country: CA (occurrence: CA)
  Receive Date: 20190626
  Receipt Date: 20190626
  Transmission Date: 20190711
  Serious: Yes (Other)
  Sender: FDA-Public Use
  Company Number: CA-PFIZER INC-2019264714

PATIENT
  Age: 67 Year
  Sex: Female

DRUGS (21)
  1. OMEGA-3 FATTY ACIDS [Concomitant]
     Active Substance: OMEGA-3 FATTY ACIDS
     Dosage: UNK
  2. ZOPICLONE [Concomitant]
     Active Substance: ZOPICLONE
     Dosage: UNK
  3. HYDROCHLOROTHIAZIDE. [Concomitant]
     Active Substance: HYDROCHLOROTHIAZIDE
     Dosage: 25 MG ONCE DAILY
  4. RITUXAN [Suspect]
     Active Substance: RITUXIMAB
     Indication: RHEUMATOID ARTHRITIS
     Dosage: 1000 MG, UNSPECIFIED FREQUENCY
     Route: 042
  5. CANDESARTAN. [Concomitant]
     Active Substance: CANDESARTAN
     Dosage: 8 MG ONCE DAILY
  6. NABILONE [Concomitant]
     Active Substance: NABILONE
     Dosage: 2 MG, UNSPECIFIED FREQUENCY
  7. NORTRIPTYLINE [Concomitant]
     Active Substance: NORTRIPTYLINE
     Dosage: 50 MG, UNSPECIFIED FREQUENCY
  8. ACETAMINOPHEN. [Concomitant]
     Active Substance: ACETAMINOPHEN
     Indication: PREMEDICATION
     Dosage: 650 MG, UNSPECIFIED FREQUENCY
     Route: 048
  9. DIPHENHYDRAMINE HYDROCHLORIDE. [Concomitant]
     Active Substance: DIPHENHYDRAMINE HYDROCHLORIDE
     Dosage: 50 MG, UNSPECIFIED FREQUENCY
     Route: 048
  10. GABAPENTIN. [Concomitant]
     Active Substance: GABAPENTIN
     Dosage: 25 MG ONCE DAILY
     Route: 048
  11. PLAQUENIL [HYDROXYCHLOROQUINE PHOSPHATE] [Concomitant]
     Active Substance: HYDROXYCHLOROQUINE DIPHOSPHATE
     Dosage: UNK
  12. NAPROXEN SODIUM. [Suspect]
     Active Substance: NAPROXEN SODIUM
     Dosage: 2 DOSAGE FORMS (DF) ONCE DAILY
  13. FOLIC ACID. [Concomitant]
     Active Substance: FOLIC ACID
     Dosage: UNK
  14. METHYLPREDNISOLONE. [Concomitant]
     Active Substance: METHYLPREDNISOLONE
     Dosage: 100 MG, UNSPECIFIED FREQUENCY
     Route: 042
  15. PILOCARPINE HYDROCHLORIDE. [Concomitant]
     Active Substance: PILOCARPINE HYDROCHLORIDE
     Dosage: 4 DOSAGE FORMS (DF) ONCE DAILY
  16. RESTASIS [Concomitant]
     Active Substance: CYCLOSPORINE
     Dosage: 1 GTT, UNSPECIFIED FREQUENCY
  17. SULFASALAZINE. [Concomitant]
     Active Substance: SULFASALAZINE
     Dosage: 2 DOSAGE FORMS (DF) ONCE DAILY
     Route: 048
  18. METHOTREXATE SODIUM. [Suspect]
     Active Substance: METHOTREXATE SODIUM
     Dosage: 7.5 MG WEEKLY
     Route: 048
  19. ACETYLSALICYLIC ACID [Concomitant]
     Active Substance: ASPIRIN
     Dosage: UNK
  20. FOLINIC ACID [Concomitant]
     Active Substance: LEUCOVORIN
     Dosage: 5 MG ONCE DAILY
     Route: 048
  21. HYDROXYCHLOROQUINE [Concomitant]
     Active Substance: HYDROXYCHLOROQUINE
     Dosage: UNK

REACTIONS (17)
  - Inflammation [Not Recovered/Not Resolved]
  - Iron deficiency [Not Recovered/Not Resolved]
  - Spinal osteoarthritis [Not Recovered/Not Resolved]
  - Haematocrit decreased [Not Recovered/Not Resolved]
  - Haemoglobin decreased [Not Recovered/Not Resolved]
  - Pruritus [Recovered/Resolved]
  - Diarrhoea [Not Recovered/Not Resolved]
  - Occult blood [Not Recovered/Not Resolved]
  - C-reactive protein increased [Not Recovered/Not Resolved]
  - Musculoskeletal stiffness [Not Recovered/Not Resolved]
  - Hot flush [Not Recovered/Not Resolved]
  - Musculoskeletal pain [Not Recovered/Not Resolved]
  - Platelet count increased [Not Recovered/Not Resolved]
  - Blood pressure increased [Not Recovered/Not Resolved]
  - Infusion related reaction [Recovered/Resolved]
  - Therapeutic product effect decreased [Not Recovered/Not Resolved]
  - Abdominal discomfort [Not Recovered/Not Resolved]
